FAERS Safety Report 25430866 (Version 1)
Quarter: 2025Q2

REPORT INFORMATION
  Report Type: Spontaneous
  Country: CN (occurrence: CN)
  Receive Date: 20250612
  Receipt Date: 20250612
  Transmission Date: 20250716
  Serious: Yes (Hospitalization, Other)
  Sender: ABBVIE
  Company Number: CN-ABBVIE-6318314

PATIENT
  Age: 33 Year
  Sex: Male
  Weight: 57 kg

DRUGS (1)
  1. LOPINAVIR\RITONAVIR [Suspect]
     Active Substance: LOPINAVIR\RITONAVIR
     Indication: Prophylaxis against HIV infection
     Dosage: 4 TABLET
     Route: 048
     Dates: start: 20250424, end: 20250510

REACTIONS (6)
  - Myocardial necrosis marker increased [Unknown]
  - Rhabdomyolysis [Recovering/Resolving]
  - Blood creatine phosphokinase increased [Recovering/Resolving]
  - Myocarditis [Unknown]
  - Pain in extremity [Unknown]
  - Limb discomfort [Unknown]

NARRATIVE: CASE EVENT DATE: 20250101
